FAERS Safety Report 14752744 (Version 2)
Quarter: 2018Q2

REPORT INFORMATION
  Report Type: Spontaneous
  Country: GB (occurrence: GB)
  Receive Date: 20180412
  Receipt Date: 20180531
  Transmission Date: 20180711
  Serious: Yes (Other)
  Sender: FDA-Public Use
  Company Number: PHHY2018GB063901

PATIENT
  Sex: Female

DRUGS (3)
  1. CARDIOPLEN XL [Suspect]
     Active Substance: FELODIPINE
     Indication: PRODUCT USED FOR UNKNOWN INDICATION
     Dosage: 5 MG, QD
     Route: 065
  2. TERBINAFINE. [Suspect]
     Active Substance: TERBINAFINE
     Indication: NAIL INFECTION
     Dosage: 1 DF, QD
     Route: 048
     Dates: start: 20171005, end: 20171029
  3. FLUCLOX [Suspect]
     Active Substance: FLUCLOXACILLIN
     Indication: COUGH
     Dosage: UNK UNK, TID
     Route: 065

REACTIONS (7)
  - Skin exfoliation [Unknown]
  - Urticaria [Unknown]
  - Rash generalised [Unknown]
  - Systemic lupus erythematosus [Unknown]
  - Liver function test increased [Unknown]
  - Hepatic steatosis [Unknown]
  - Ocular hyperaemia [Unknown]
